FAERS Safety Report 8356426-7 (Version None)
Quarter: 2012Q2

REPORT INFORMATION
  Report Type: 
  Country: None (occurrence: None)
  Receive Date: 20120514
  Receipt Date: 20120508
  Transmission Date: 20120825
  Serious: Yes (Other)
  Sender: FDA-Public Use
  Company Number: US-PFIZER INC-2012112878

PATIENT
  Sex: Female
  Weight: 65.76 kg

DRUGS (5)
  1. CHANTIX [Suspect]
     Indication: SMOKING CESSATION THERAPY
     Dosage: UNK
     Route: 048
     Dates: start: 20111225
  2. CHANTIX [Suspect]
     Dosage: UNK
     Route: 048
     Dates: start: 20120501
  3. VICODIN [Concomitant]
     Indication: NECK PAIN
  4. VICODIN [Concomitant]
     Indication: CERVICAL VERTEBRAL FRACTURE
     Dosage: 500/325, AS NEEDED
  5. CHANTIX [Suspect]
     Dosage: UNK, 2X/DAY
     Route: 048

REACTIONS (13)
  - PERSONALITY CHANGE [None]
  - AGITATION [None]
  - CRYING [None]
  - MANIA [None]
  - EMOTIONAL DISORDER [None]
  - FEELING ABNORMAL [None]
  - DRUG DEPENDENCE [None]
  - AGGRESSION [None]
  - ABNORMAL BEHAVIOUR [None]
  - NAUSEA [None]
  - MIGRAINE [None]
  - LOGORRHOEA [None]
  - ANXIETY [None]
